FAERS Safety Report 5779991-2 (Version None)
Quarter: 2008Q2

REPORT INFORMATION
  Report Type: 
  Country: None (occurrence: None)
  Receive Date: 20080620
  Receipt Date: 20080611
  Transmission Date: 20081010
  Serious: Yes (Life-Threatening, Hospitalization)
  Sender: FDA-Public Use
  Company Number: ES-JNJFOC-20080603409

PATIENT
  Age: 59 Year
  Sex: Male

DRUGS (5)
  1. ZALDIAR [Suspect]
     Indication: POST HERPETIC NEURALGIA
     Route: 048
  2. METAMIZOL [Interacting]
     Indication: POST HERPETIC NEURALGIA
     Route: 048
  3. PAROXETINE HCL [Interacting]
     Indication: DEPRESSION
     Route: 048
  4. GABAPENTIN [Concomitant]
     Indication: POST HERPETIC NEURALGIA
     Route: 048
  5. DAONIL [Concomitant]
     Indication: DIABETES MELLITUS
     Route: 048

REACTIONS (5)
  - APALLIC SYNDROME [None]
  - DRUG INTERACTION [None]
  - MELAENA [None]
  - NERVOUS SYSTEM DISORDER [None]
  - UPPER GASTROINTESTINAL HAEMORRHAGE [None]
